FAERS Safety Report 7767849-9 (Version None)
Quarter: 2011Q3

REPORT INFORMATION
  Report Type: 
  Country: None (occurrence: None)
  Receive Date: 20110922
  Receipt Date: 20100928
  Transmission Date: 20111222
  Serious: No
  Sender: FDA-Public Use
  Company Number: US-ASTRAZENECA-2010SE45931

PATIENT
  Age: 20412 Day
  Sex: Female
  Weight: 77.1 kg

DRUGS (4)
  1. VALIUM [Concomitant]
     Indication: ANXIETY
  2. VICODIN [Concomitant]
     Indication: PAIN
  3. SEROQUEL XR [Suspect]
     Indication: POST-TRAUMATIC STRESS DISORDER
     Route: 048
     Dates: start: 19950101
  4. TOPAMAX [Concomitant]
     Indication: PAIN

REACTIONS (6)
  - NIGHTMARE [None]
  - WRONG TECHNIQUE IN DRUG USAGE PROCESS [None]
  - TREMOR [None]
  - APHAGIA [None]
  - DRUG WITHDRAWAL SYNDROME [None]
  - INCORRECT DOSE ADMINISTERED [None]
